FAERS Safety Report 6601530-4 (Version None)
Quarter: 2010Q1

REPORT INFORMATION
  Report Type: 
  Country: None (occurrence: None)
  Receive Date: 20100225
  Receipt Date: 20091110
  Transmission Date: 20100710
  Serious: No
  Sender: FDA-Public Use
  Company Number: US-KINGPHARMUSA00001-K200901406

PATIENT
  Sex: Female
  Weight: 56.689 kg

DRUGS (2)
  1. FLECTOR [Suspect]
     Indication: MORTON'S NEUROMA
     Dosage: 1 PATCH, TWICE
     Route: 061
     Dates: start: 20091101, end: 20091101
  2. ANTIBIOTICS [Concomitant]
     Indication: NASOPHARYNGITIS

REACTIONS (2)
  - EYE SWELLING [None]
  - SWELLING FACE [None]
